FAERS Safety Report 21654491 (Version 3)
Quarter: 2023Q1

REPORT INFORMATION
  Report Type: Other
  Country: US (occurrence: None)
  Receive Date: 20221129
  Receipt Date: 20230320
  Transmission Date: 20230418
  Serious: Yes (Other)
  Sender: FDA-Public Use
  Company Number: US-ROCHE-3212454

PATIENT
  Age: 70 Year
  Sex: Male

DRUGS (2)
  1. OCREVUS [Suspect]
     Active Substance: OCRELIZUMAB
     Indication: Relapsing multiple sclerosis
     Dosage: NO; THEN FOR EVERY 6 MONTHS, LAST INFUSION WAS ON 12/13/22
     Route: 042
     Dates: start: 20210427
  2. OCREVUS [Suspect]
     Active Substance: OCRELIZUMAB
     Indication: Primary progressive multiple sclerosis

REACTIONS (3)
  - Basal cell carcinoma [Not Recovered/Not Resolved]
  - Memory impairment [Unknown]
  - Agnosia [Unknown]
